FAERS Safety Report 16881099 (Version 1)
Quarter: 2019Q4

REPORT INFORMATION
  Report Type: Spontaneous
  Country: NO (occurrence: NO)
  Receive Date: 20191003
  Receipt Date: 20191003
  Transmission Date: 20200122
  Serious: Yes (Other)
  Sender: FDA-Public Use
  Company Number: NO-PFIZER INC-2019426738

PATIENT
  Age: 60 Year
  Sex: Male
  Weight: 88 kg

DRUGS (1)
  1. CORDARONE X [Suspect]
     Active Substance: AMIODARONE HYDROCHLORIDE
     Indication: CARDIAC FIBRILLATION
     Dosage: 200 MG, 1X/DAY (FOR A LONG TIME)
     Route: 065

REACTIONS (7)
  - Tachypnoea [Unknown]
  - Cold sweat [Recovering/Resolving]
  - Muscular weakness [Recovering/Resolving]
  - Exophthalmos [Recovering/Resolving]
  - Goitre [Recovering/Resolving]
  - Weight decreased [Recovering/Resolving]
  - Pallor [Recovering/Resolving]
